FAERS Safety Report 8053898-2 (Version None)
Quarter: 2012Q1

REPORT INFORMATION
  Report Type: 
  Country: None (occurrence: None)
  Receive Date: 20120118
  Receipt Date: 20120106
  Transmission Date: 20120608
  Serious: Yes (Hospitalization, Other)
  Sender: FDA-Public Use
  Company Number: US-ELI_LILLY_AND_COMPANY-US201201001966

PATIENT
  Sex: Male

DRUGS (2)
  1. VIAGRA [Concomitant]
  2. CIALIS [Suspect]
     Indication: ERECTILE DYSFUNCTION
     Dosage: 20 MG, PRN
     Dates: start: 20110101

REACTIONS (5)
  - LOSS OF CONSCIOUSNESS [None]
  - CHEST PAIN [None]
  - ABDOMINAL DISTENSION [None]
  - MEDICATION ERROR [None]
  - STENT PLACEMENT [None]
